FAERS Safety Report 6306512-8 (Version None)
Quarter: 2009Q3

REPORT INFORMATION
  Report Type: 
  Country: None (occurrence: None)
  Receive Date: 20090810
  Receipt Date: 20090731
  Transmission Date: 20100115
  Serious: Yes (Hospitalization)
  Sender: FDA-Public Use
  Company Number: ADR12622009 (MHRA ADR NO.: ADR 20464952-001)

PATIENT
  Age: 87 Year
  Sex: Male

DRUGS (11)
  1. ALENDRONATE SODIUM [Suspect]
     Indication: OSTEOPOROSIS
     Dosage: 70MG-1/1 WEEKS ORAL
     Route: 048
     Dates: start: 20080718
  2. ASPIRIN [Concomitant]
  3. ALLOPURINOL [Concomitant]
  4. AMISULPRIDE [Concomitant]
  5. CALCEOS [Concomitant]
  6. DOCUSATE SODIUM [Concomitant]
  7. FUROSEMIDE [Concomitant]
  8. MIRTAZAPINE [Concomitant]
  9. NULYTELY [Concomitant]
  10. PARACETAMOL [Concomitant]
  11. SENNA [Concomitant]

REACTIONS (2)
  - GASTROINTESTINAL HAEMORRHAGE [None]
  - THROMBOSIS [None]
